FAERS Safety Report 18920123 (Version 1)
Quarter: 2021Q1

REPORT INFORMATION
  Report Type: Spontaneous
  Country: IS (occurrence: IS)
  Receive Date: 20210222
  Receipt Date: 20210222
  Transmission Date: 20210420
  Serious: Yes (Life-Threatening, Hospitalization)
  Sender: FDA-Public Use
  Company Number: IS-TEVA-2021-IS-1881127

PATIENT
  Age: 36 Year
  Sex: Female
  Weight: 65 kg

DRUGS (2)
  1. DOXYLIN 100 MG TOFLUR [Suspect]
     Active Substance: DOXYCYCLINE
     Indication: ROSACEA
     Dates: start: 20190425, end: 20190506
  2. PARATABS [Concomitant]

REACTIONS (7)
  - Hyperhidrosis [Recovered/Resolved]
  - Abdominal pain upper [Recovered/Resolved]
  - Pyrexia [Recovered/Resolved]
  - Chills [Recovered/Resolved]
  - Hepatitis [Recovered/Resolved]
  - Hepatic enzyme increased [Recovered/Resolved with Sequelae]
  - Asthenia [Recovered/Resolved]

NARRATIVE: CASE EVENT DATE: 20190430
